FAERS Safety Report 13389591 (Version 1)
Quarter: 2017Q1

REPORT INFORMATION
  Report Type: Spontaneous
  Country: GR (occurrence: GR)
  Receive Date: 20170330
  Receipt Date: 20170330
  Transmission Date: 20170429
  Serious: Yes (Death, Hospitalization, Other)
  Sender: FDA-Public Use
  Company Number: GR-CELGENEUS-GRC-2017028510

PATIENT

DRUGS (2)
  1. ABRAXANE [Suspect]
     Active Substance: PACLITAXEL
     Indication: OFF LABEL USE
  2. ABRAXANE [Suspect]
     Active Substance: PACLITAXEL
     Indication: NON-SMALL CELL LUNG CANCER
     Dosage: 100 MILLIGRAM/SQ. METER
     Route: 041

REACTIONS (8)
  - Hypersensitivity [Unknown]
  - Thrombocytopenia [Unknown]
  - Neutropenia [Unknown]
  - Death [Fatal]
  - Cardiac disorder [Recovered/Resolved]
  - Alopecia [Unknown]
  - Dysphagia [Unknown]
  - Fatigue [Unknown]
